FAERS Safety Report 5365677-5 (Version None)
Quarter: 2007Q2

REPORT INFORMATION
  Report Type: 
  Country: None (occurrence: None)
  Receive Date: 20070621
  Receipt Date: 20070613
  Transmission Date: 20071010
  Serious: Yes (Other)
  Sender: FDA-Public Use
  Company Number: US-AMGEN-STX223385

PATIENT
  Sex: Female
  Weight: 93.5 kg

DRUGS (5)
  1. ENBREL [Suspect]
     Indication: RHEUMATOID ARTHRITIS
     Route: 058
     Dates: start: 20050215
  2. ENBREL [Suspect]
     Indication: PSORIASIS
     Route: 058
  3. SYNTHROID [Concomitant]
  4. VITAMIN D [Concomitant]
  5. AMITRIPTYLINE HCL [Concomitant]

REACTIONS (6)
  - HYPOTHYROIDISM [None]
  - INAPPROPRIATE SCHEDULE OF DRUG ADMINISTRATION [None]
  - INJECTION SITE HAEMATOMA [None]
  - INJECTION SITE HAEMORRHAGE [None]
  - INJECTION SITE PAIN [None]
  - PSORIASIS [None]
